FAERS Safety Report 23842572 (Version 3)
Quarter: 2024Q3

REPORT INFORMATION
  Report Type: Report from Study
  Country: US (occurrence: US)
  Receive Date: 20240510
  Receipt Date: 20240711
  Transmission Date: 20241017
  Serious: No
  Sender: ALEXION PHARMACEUTICALS
  Company Number: US-AstraZeneca-CH-00619538A

PATIENT
  Sex: Female

DRUGS (1)
  1. SOLIRIS [Suspect]
     Active Substance: ECULIZUMAB
     Indication: Neuromyelitis optica spectrum disorder
     Dosage: UNK
     Route: 042
     Dates: start: 202009, end: 202304

REACTIONS (5)
  - Pharyngitis [Recovering/Resolving]
  - Pain [Recovering/Resolving]
  - Nasal obstruction [Recovering/Resolving]
  - Rhinorrhoea [Recovering/Resolving]
  - Nasopharyngitis [Unknown]
